FAERS Safety Report 17215883 (Version 1)
Quarter: 2019Q4

REPORT INFORMATION
  Report Type: Spontaneous
  Country: US (occurrence: US)
  Receive Date: 20191230
  Receipt Date: 20191230
  Transmission Date: 20200122
  Serious: Yes (Hospitalization)
  Sender: FDA-Public Use
  Company Number: US-ALLERGAN-1952566US

PATIENT
  Sex: Female

DRUGS (1)
  1. BOTOX [Suspect]
     Active Substance: ONABOTULINUMTOXINA
     Indication: URINARY INCONTINENCE
     Dosage: 100 UNITS, SINGLE
     Dates: start: 20191114, end: 20191114

REACTIONS (2)
  - Urinary retention [Unknown]
  - Infection [Unknown]

NARRATIVE: CASE EVENT DATE: 201912
